FAERS Safety Report 11678048 (Version 2)
Quarter: 2016Q4

REPORT INFORMATION
  Report Type: Spontaneous
  Country: JP (occurrence: JP)
  Receive Date: 20151028
  Receipt Date: 20161216
  Transmission Date: 20170206
  Serious: Yes (Life-Threatening)
  Sender: FDA-Public Use
  Company Number: JP-009507513-1510JPN012176

PATIENT
  Age: 54 Year
  Sex: Male

DRUGS (3)
  1. REBETOL [Suspect]
     Active Substance: RIBAVIRIN
     Indication: HEPATITIS C
     Dosage: 600 MG, QD
     Route: 048
     Dates: start: 20150317, end: 20150901
  2. URSODIOL. [Concomitant]
     Active Substance: URSODIOL
     Dosage: UNK
     Route: 048
  3. PEGINTRON [Suspect]
     Active Substance: PEGINTERFERON ALFA-2B
     Indication: HEPATITIS C
     Dosage: 100 MICROGRAM, QW
     Route: 058
     Dates: start: 20150317, end: 20150901

REACTIONS (1)
  - Skin ulcer [Recovering/Resolving]

NARRATIVE: CASE EVENT DATE: 20150901
